FAERS Safety Report 10744535 (Version 1)
Quarter: 2015Q1

REPORT INFORMATION
  Report Type: Spontaneous
  Country: FR (occurrence: None)
  Receive Date: 20150126
  Receipt Date: 20150126
  Transmission Date: 20150721
  Serious: Yes (Other)
  Sender: FDA-Public Use
  Company Number: AXC-2015-000021

PATIENT
  Age: 54 Year
  Sex: Male

DRUGS (2)
  1. PYLERA [Suspect]
     Active Substance: BISMUTH SUBCITRATE POTASSIUM\METRONIDAZOLE\TETRACYCLINE HYDROCHLORIDE
     Indication: HELICOBACTER INFECTION
     Route: 048
     Dates: start: 20141220, end: 20141229
  2. OMEPRAZOLE (OMEPRAZOLE) UNKNOWN [Concomitant]
     Active Substance: OMEPRAZOLE

REACTIONS (3)
  - Pruritus [None]
  - Laryngeal oedema [None]
  - Abdominal distension [None]

NARRATIVE: CASE EVENT DATE: 20150107
